FAERS Safety Report 5653018-5 (Version None)
Quarter: 2008Q1

REPORT INFORMATION
  Report Type: 
  Country: None (occurrence: None)
  Receive Date: 20080306
  Receipt Date: 20080226
  Transmission Date: 20080703
  Serious: Yes (Other)
  Sender: FDA-Public Use
  Company Number: PHHY2008BR02380

PATIENT
  Age: 57 Year
  Weight: 66 kg

DRUGS (5)
  1. MACRODANTINA [Concomitant]
     Indication: URINARY TRACT INFECTION
     Dosage: ONCE A WEEK
     Route: 048
     Dates: start: 20020101
  2. ADVIL [Concomitant]
     Indication: HEADACHE
     Dosage: EVERY OTHER DAY
  3. NARAMIG [Concomitant]
     Indication: MIGRAINE
  4. GLEEVEC [Suspect]
     Indication: CHRONIC MYELOID LEUKAEMIA
     Dosage: 100 MG, QID
     Route: 048
     Dates: start: 20010101
  5. LIBIAN [Concomitant]
     Dosage: UNK, QD
     Route: 048
     Dates: start: 20070501

REACTIONS (4)
  - FATIGUE [None]
  - LACRIMATION INCREASED [None]
  - TENOSYNOVITIS [None]
  - WEIGHT INCREASED [None]
